FAERS Safety Report 11561963 (Version 1)
Quarter: 2015Q3

REPORT INFORMATION
  Report Type: Spontaneous
  Country: US (occurrence: US)
  Receive Date: 20150928
  Receipt Date: 20150928
  Transmission Date: 20151125
  Serious: Yes (Death, Other)
  Sender: FDA-Public Use
  Company Number: US-GLAXOSMITHKLINE-US2015136941

PATIENT
  Age: 81 Year
  Sex: Male

DRUGS (12)
  1. COREG [Concomitant]
     Active Substance: CARVEDILOL
  2. FUROSEMIDE. [Concomitant]
     Active Substance: FUROSEMIDE
  3. FISH OIL [Concomitant]
     Active Substance: FISH OIL
  4. SYNTHROID [Concomitant]
     Active Substance: LEVOTHYROXINE SODIUM
  5. PROAIR (FLUTICASONE PROPIONATE) [Concomitant]
     Active Substance: FLUTICASONE PROPIONATE
  6. SPIRIVA [Concomitant]
     Active Substance: TIOTROPIUM BROMIDE MONOHYDRATE
  7. ADVAIR HFA [Suspect]
     Active Substance: FLUTICASONE PROPIONATE\SALMETEROL XINAFOATE
     Dosage: 250/50 UG
     Route: 055
     Dates: start: 201507
  8. ALPHAGAN P [Concomitant]
     Active Substance: BRIMONIDINE TARTRATE
  9. FLUTICASONE [Concomitant]
     Active Substance: FLUTICASONE\FLUTICASONE PROPIONATE
  10. ADVAIR HFA [Suspect]
     Active Substance: FLUTICASONE PROPIONATE\SALMETEROL XINAFOATE
     Indication: CHRONIC OBSTRUCTIVE PULMONARY DISEASE
     Dosage: 100/50 UG
     Route: 055
     Dates: end: 201507
  11. COUMADIN [Concomitant]
     Active Substance: WARFARIN SODIUM
  12. LATANOPROST. [Concomitant]
     Active Substance: LATANOPROST

REACTIONS (3)
  - Respiratory arrest [Fatal]
  - Chronic obstructive pulmonary disease [Fatal]
  - Cardiac failure congestive [Fatal]

NARRATIVE: CASE EVENT DATE: 20150922
